FAERS Safety Report 4531233-1 (Version None)
Quarter: 2004Q4

REPORT INFORMATION
  Report Type: 
  Country: None (occurrence: None)
  Receive Date: 20041216
  Receipt Date: 20041207
  Transmission Date: 20050328
  Serious: Yes (Death, Hospitalization)
  Sender: FDA-Public Use
  Company Number: 2004UW23692

PATIENT
  Age: 69 Year
  Sex: Male
  Weight: 80 kg

DRUGS (6)
  1. IRESSA [Suspect]
     Indication: NON-SMALL CELL LUNG CANCER
     Dosage: 250 MG QD PO
     Route: 048
     Dates: start: 20040616, end: 20041017
  2. FLOMAX [Concomitant]
  3. BETOPTIC [Concomitant]
  4. XALATAN [Concomitant]
  5. ADVAIR DISKUS 100/50 [Concomitant]
  6. VENTOLIN [Concomitant]

REACTIONS (30)
  - ACTIVATED PARTIAL THROMBOPLASTIN TIME PROLONGED [None]
  - ACUTE RESPIRATORY DISTRESS SYNDROME [None]
  - ALANINE AMINOTRANSFERASE INCREASED [None]
  - ASPARTATE AMINOTRANSFERASE INCREASED [None]
  - BLOOD BILIRUBIN INCREASED [None]
  - BLOOD CREATINE PHOSPHOKINASE INCREASED [None]
  - BRONCHOALVEOLAR LAVAGE ABNORMAL [None]
  - COAGULOPATHY [None]
  - COUGH [None]
  - DYSPNOEA [None]
  - EROSIVE DUODENITIS [None]
  - FUNGAL INFECTION [None]
  - GASTRIC DISORDER [None]
  - HAEMOPTYSIS [None]
  - INTERSTITIAL LUNG DISEASE [None]
  - MEDICAL DEVICE COMPLICATION [None]
  - MONOCYTE COUNT INCREASED [None]
  - NEUTROPHILIA [None]
  - OESOPHAGITIS [None]
  - PLATELET COUNT INCREASED [None]
  - PNEUMONIA [None]
  - PNEUMONITIS [None]
  - PULMONARY HAEMORRHAGE [None]
  - RENAL FAILURE [None]
  - RENAL IMPAIRMENT [None]
  - RESPIRATORY ARREST [None]
  - TACHYPNOEA [None]
  - THROMBOSIS [None]
  - TROPONIN T INCREASED [None]
  - UPPER GASTROINTESTINAL HAEMORRHAGE [None]
